FAERS Safety Report 5308106-X (Version None)
Quarter: 2007Q3

REPORT INFORMATION
  Report Type: 
  Country: None (occurrence: None)
  Receive Date: 20070426
  Receipt Date: 20070417
  Transmission Date: 20080115
  Serious: Yes (Hospitalization)
  Sender: FDA-Public Use
  Company Number: PHNR2007AU00951

PATIENT
  Age: 55 Year
  Sex: Female

DRUGS (2)
  1. ZELMAC [Suspect]
     Dosage: UNK, UNK
     Dates: start: 20020101, end: 20070405
  2. CONTRACEPTIVES UNS [Concomitant]

REACTIONS (9)
  - ANGINA PECTORIS [None]
  - BLOOD CREATINE PHOSPHOKINASE INCREASED [None]
  - BUNDLE BRANCH BLOCK LEFT [None]
  - DYSPNOEA [None]
  - MYOCARDIAL INFARCTION [None]
  - MYOCARDITIS [None]
  - MYOPATHY [None]
  - TROPONIN INCREASED [None]
  - VENTRICULAR DYSFUNCTION [None]
